FAERS Safety Report 8550539 (Version 3)
Quarter: 2013Q3

REPORT INFORMATION
  Report Type: Spontaneous
  Country: US (occurrence: US)
  Receive Date: 20120508
  Receipt Date: 20130704
  Transmission Date: 20140515
  Serious: No
  Sender: FDA-Public Use
  Company Number: US-BIOGENIDEC-2012BI014948

PATIENT
  Age: 34 Year
  Sex: Female

DRUGS (2)
  1. TYSABRI [Suspect]
     Indication: MULTIPLE SCLEROSIS
     Route: 042
     Dates: start: 20111020, end: 20120412
  2. TYSABRI [Suspect]
     Indication: MULTIPLE SCLEROSIS
     Route: 042
     Dates: start: 20130110

REACTIONS (6)
  - Reaction to preservatives [Unknown]
  - Urticaria [Recovered/Resolved]
  - Migraine [Not Recovered/Not Resolved]
  - Poor venous access [Recovered/Resolved]
  - Central venous catheterisation [Recovered/Resolved]
  - Multiple sclerosis [Recovered/Resolved]
